FAERS Safety Report 9522274 (Version 1)
Quarter: 2013Q3

REPORT INFORMATION
  Report Type: Spontaneous
  Country: JP (occurrence: JP)
  Receive Date: 20130913
  Receipt Date: 20130913
  Transmission Date: 20140515
  Serious: Yes (Other)
  Sender: FDA-Public Use
  Company Number: PHHY2013JP100965

PATIENT
  Sex: Male

DRUGS (4)
  1. VOLTAREN [Suspect]
     Dosage: 25 MG, BID
     Route: 054
  2. DIOVAN [Suspect]
     Dosage: UNK UKN, UNK
     Route: 048
  3. MYSLEE [Concomitant]
     Dosage: UNK UKN, UNK
     Route: 048
  4. LOXONIN [Concomitant]
     Dosage: UNK UKN, UNK
     Route: 048

REACTIONS (7)
  - Lung neoplasm malignant [Unknown]
  - Intercostal neuralgia [Unknown]
  - Paraesthesia [Unknown]
  - Sleep disorder [Unknown]
  - Pain [Unknown]
  - Decreased appetite [Unknown]
  - Abdominal discomfort [Unknown]
